FAERS Safety Report 7784781-5 (Version None)
Quarter: 2011Q3

REPORT INFORMATION
  Report Type: 
  Country: None (occurrence: None)
  Receive Date: 20110928
  Receipt Date: 20110919
  Transmission Date: 20111222
  Serious: Yes (Hospitalization)
  Sender: FDA-Public Use
  Company Number: GB-US-EMD SERONO, INC.-7084059

PATIENT
  Sex: Female

DRUGS (2)
  1. REBIF [Suspect]
     Indication: RELAPSING-REMITTING MULTIPLE SCLEROSIS
     Route: 058
     Dates: start: 20110103
  2. UNSPECIFIED TABLET [Concomitant]
     Indication: TYPE 2 DIABETES MELLITUS

REACTIONS (4)
  - PITUITARY TUMOUR RECURRENT [None]
  - VOMITING [None]
  - HYPOGLYCAEMIA [None]
  - HEADACHE [None]
